FAERS Safety Report 4602300-9 (Version None)
Quarter: 2005Q2

REPORT INFORMATION
  Report Type: 
  Country: None (occurrence: None)
  Receive Date: 20050223
  Receipt Date: 20041229
  Transmission Date: 20051028
  Serious: No
  Sender: FDA-Public Use
  Company Number: 211386

PATIENT
  Age: 57 Year
  Sex: Male
  Weight: 148 kg

DRUGS (10)
  1. RAPTIVA [Suspect]
     Indication: PSORIASIS
     Dosage: 150 MG, 1/WEEK, SUBCUTANEOUS
     Route: 058
     Dates: start: 20041004
  2. PLAVIX [Concomitant]
  3. LISINOPRIL [Concomitant]
  4. ATENOLOL [Concomitant]
  5. GLYBURIDE [Concomitant]
  6. ACTOS [Concomitant]
  7. DOXYCYCLINE [Concomitant]
  8. ALPRAZOLAM [Concomitant]
  9. NITRO PATCH (NITROGLYCERIN) [Concomitant]
  10. HCTZ/TRIAMTERENE (HYDROCHLORIDE, TRIAMTERENE) [Concomitant]

REACTIONS (1)
  - PLATELET COUNT DECREASED [None]
